FAERS Safety Report 4283314-8 (Version None)
Quarter: 2004Q1

REPORT INFORMATION
  Report Type: 
  Country: None (occurrence: None)
  Receive Date: 20040114
  Receipt Date: 20031021
  Transmission Date: 20041129
  Serious: Yes (Other)
  Sender: FDA-Public Use
  Company Number: BIVUS030087

PATIENT
  Age: 57 Year
  Sex: Male
  Weight: 95.2 kg

DRUGS (13)
  1. ANGIOMAX [Suspect]
     Indication: ANTICOAGULANT THERAPY
     Dosage: 0.75 MG/KG, BOLUS, IV BOLUS
     Route: 040
     Dates: start: 20030919, end: 20030919
  2. ASPIRIN [Concomitant]
  3. NIFEDIPINE [Concomitant]
  4. LISINOPRIL [Concomitant]
  5. HYDROCHLOROTHIAZIDE [Concomitant]
  6. METAFORMIN (METAFORMIN HYDROCHLORIDE) [Concomitant]
  7. PIOGLITAZONE HCL [Concomitant]
  8. ATENOLOL [Concomitant]
  9. GLYBURIDE [Concomitant]
  10. SIMVASTATIN [Concomitant]
  11. SULFASALAZINE [Concomitant]
  12. XYLOCAINE 2% (LIDOCAINE HYDROCHLORIDE) [Concomitant]
  13. ULTRAVIST (IOPROMIDE) [Concomitant]

REACTIONS (1)
  - CORONARY ARTERY THROMBOSIS [None]
